FAERS Safety Report 5880185-0 (Version None)
Quarter: 2008Q3

REPORT INFORMATION
  Report Type: 
  Country: None (occurrence: None)
  Receive Date: 20080912
  Receipt Date: 20080903
  Transmission Date: 20090109
  Serious: Yes (Death, Other)
  Sender: FDA-Public Use
  Company Number: CH-WYE-H05824908

PATIENT
  Age: 34 Year
  Sex: Female

DRUGS (1)
  1. EFFEXOR [Suspect]
     Dosage: OVERDOSE AMOUNT UNKNOWN

REACTIONS (14)
  - ATAXIA [None]
  - BUNDLE BRANCH BLOCK LEFT [None]
  - BUNDLE BRANCH BLOCK RIGHT [None]
  - CONVULSION [None]
  - DISTURBANCE IN ATTENTION [None]
  - GASTROINTESTINAL MOTILITY DISORDER [None]
  - MYDRIASIS [None]
  - NEUROLOGICAL SYMPTOM [None]
  - OVERDOSE [None]
  - PULSE ABSENT [None]
  - RENAL FAILURE [None]
  - RHABDOMYOLYSIS [None]
  - SOMNOLENCE [None]
  - TACHYCARDIA [None]
